FAERS Safety Report 15824432 (Version 1)
Quarter: 2019Q1

REPORT INFORMATION
  Report Type: Other
  Country: IN (occurrence: IN)
  Receive Date: 20190115
  Receipt Date: 20190115
  Transmission Date: 20190417
  Serious: Yes (Hospitalization, Other)
  Sender: FDA-Public Use
  Company Number: IN-DEXPHARM-20190012

PATIENT
  Age: 46 Year
  Sex: Male

DRUGS (1)
  1. DICLOFENAC [Suspect]
     Active Substance: DICLOFENAC
     Indication: LIGAMENT SPRAIN
     Dosage: 50 MG THREE TIMES A DAY

REACTIONS (1)
  - Fixed eruption [Recovering/Resolving]
